FAERS Safety Report 7785916-0 (Version None)
Quarter: 2011Q3

REPORT INFORMATION
  Report Type: 
  Country: None (occurrence: None)
  Receive Date: 20110929
  Receipt Date: 20110921
  Transmission Date: 20111222
  Serious: Yes (Other)
  Sender: FDA-Public Use
  Company Number: CA-ROCHE-751510

PATIENT
  Sex: Female
  Weight: 61.5 kg

DRUGS (6)
  1. LORAZEPAM [Concomitant]
  2. PEGINTERFERON ALFA-2A [Suspect]
     Indication: HEPATITIS C
     Dosage: Q1W. LAST DOSE PRIOR TO SAE ON 08 NOV 2010.
     Route: 058
  3. COPEGUS [Suspect]
     Indication: HEPATITIS C
     Dosage: FREQUENCY DAILY TOTAL,
     Route: 048
     Dates: start: 20091214, end: 20101115
  4. FLUOXETINE [Concomitant]
  5. ROBAX PLATINUM [Concomitant]
     Dosage: TDD: PRN
  6. RO 5024048 (HCV POLYMERASE INHIBITOR) [Suspect]
     Indication: HEPATITIS C
     Dosage: DOSE BLINDED, LAST DOSE PRIOR TO SAE ON 07 MAR 2010.TREATMENT GROUP A 500MG TWICE DAILY FOR 12 WEEKS
     Route: 048
     Dates: start: 20091214, end: 20100307

REACTIONS (1)
  - POLYMYOSITIS [None]
